FAERS Safety Report 9803617 (Version 1)
Quarter: 2014Q1

REPORT INFORMATION
  Report Type: Spontaneous
  Country: US (occurrence: US)
  Receive Date: 20140108
  Receipt Date: 20140108
  Transmission Date: 20141002
  Serious: No
  Sender: FDA-Public Use
  Company Number: US-GLAXOSMITHKLINE-A1013264A

PATIENT
  Age: 63 Year
  Sex: Male

DRUGS (11)
  1. LOVAZA [Suspect]
     Indication: BLOOD TRIGLYCERIDES INCREASED
     Dosage: 2000MG TWICE PER DAY
     Route: 048
     Dates: start: 201104, end: 20130122
  2. ATENOLOL [Concomitant]
  3. PRAVASTATIN [Concomitant]
  4. MULTIVITAMIN [Concomitant]
  5. CRESTOR [Concomitant]
  6. FENOFIBRATE [Concomitant]
  7. TRICOR [Concomitant]
  8. LISINOPRIL [Concomitant]
  9. ASPIRIN [Concomitant]
  10. METFORMIN [Concomitant]
  11. OMEPRAZOLE [Concomitant]

REACTIONS (2)
  - Blood glucose increased [Recovering/Resolving]
  - Drug ineffective [Unknown]
